FAERS Safety Report 7932757-7 (Version None)
Quarter: 2011Q4

REPORT INFORMATION
  Report Type: 
  Country: None (occurrence: None)
  Receive Date: 20111122
  Receipt Date: 20111114
  Transmission Date: 20120403
  Serious: Yes (Other)
  Sender: FDA-Public Use
  Company Number: MX-UCBSA-045735

PATIENT
  Age: 27 Year
  Sex: Female
  Weight: 48 kg

DRUGS (3)
  1. VIMPAT [Suspect]
     Indication: EPILEPSY
     Route: 048
     Dates: start: 20110902, end: 20111104
  2. TRILEPTAL [Concomitant]
     Indication: EPILEPSY
     Dosage: NUMBER OF INTAKES PER DAY: 2.5
     Route: 048
     Dates: start: 20100101
  3. CLONAZEPAM [Concomitant]
     Indication: EPILEPSY
     Route: 048
     Dates: start: 20100101

REACTIONS (4)
  - NAUSEA [None]
  - DECREASED APPETITE [None]
  - HYPERTENSIVE CRISIS [None]
  - WEIGHT DECREASED [None]
